FAERS Safety Report 6417829-0 (Version None)
Quarter: 2009Q4

REPORT INFORMATION
  Report Type: 
  Country: None (occurrence: None)
  Receive Date: 20091027
  Receipt Date: 20091027
  Transmission Date: 20100525
  Serious: Yes (Life-Threatening)
  Sender: FDA-Public Use
  Company Number: None

PATIENT
  Age: 60 Year
  Sex: Female
  Weight: 83.9 kg

DRUGS (7)
  1. LENALIDOMIDE [Suspect]
     Indication: MULTIPLE MYELOMA
     Dosage: 25MG ONCE DAILY PO
     Route: 048
     Dates: start: 20090818, end: 20090911
  2. DAPSONE [Concomitant]
  3. LYRICA [Concomitant]
  4. OXYCODONE [Concomitant]
  5. VORICONAZOLE [Concomitant]
  6. ASPIRIN [Concomitant]
  7. VALACYCLOVIR [Concomitant]

REACTIONS (3)
  - MULTIPLE MYELOMA [None]
  - RENAL DISORDER [None]
  - TUBULOINTERSTITIAL NEPHRITIS [None]
